FAERS Safety Report 13832160 (Version 1)
Quarter: 2017Q3

REPORT INFORMATION
  Report Type: Spontaneous
  Country: US (occurrence: US)
  Receive Date: 20170803
  Receipt Date: 20170803
  Transmission Date: 20171127
  Serious: No
  Sender: FDA-Public Use
  Company Number: US-ROCHE-702923

PATIENT
  Age: 64 Year
  Sex: Female
  Weight: 75 kg

DRUGS (3)
  1. BONIVA [Suspect]
     Active Substance: IBANDRONATE SODIUM
     Indication: OSTEOPOROSIS
     Dosage: TOOK ONE DOSE ONLY
     Route: 048
     Dates: start: 20100501, end: 20100501
  2. CALTRATE [Concomitant]
     Active Substance: CALCIUM CARBONATE
     Route: 065
  3. ASPIRIN. [Concomitant]
     Active Substance: ASPIRIN
     Dosage: NAME RPTD AS BABY ASPIRIN
     Route: 065

REACTIONS (2)
  - Pain [Recovering/Resolving]
  - Malaise [Recovering/Resolving]

NARRATIVE: CASE EVENT DATE: 20100503
